FAERS Safety Report 15076032 (Version 1)
Quarter: 2018Q2

REPORT INFORMATION
  Report Type: Spontaneous
  Country: US (occurrence: US)
  Receive Date: 20180627
  Receipt Date: 20180627
  Transmission Date: 20180711
  Serious: Yes (Other)
  Sender: FDA-Public Use
  Company Number: US-PFIZER INC-2018256742

PATIENT
  Age: 36 Year
  Sex: Male

DRUGS (23)
  1. VINCRISTINE SULFATE. [Suspect]
     Active Substance: VINCRISTINE SULFATE
     Indication: ACUTE LYMPHOCYTIC LEUKAEMIA
     Dosage: UNK, CYCLIC
  2. METHOTREXATE. [Concomitant]
     Active Substance: METHOTREXATE
     Indication: ACUTE LYMPHOCYTIC LEUKAEMIA
     Dosage: UNK, CYCLIC (ON DAY 1)
     Route: 042
  3. ACYCLOVIR /00587301/ [Concomitant]
     Active Substance: ACYCLOVIR
     Dosage: UNK
  4. INSULIN NPH /01223208/ [Concomitant]
     Indication: DIABETES MELLITUS
     Dosage: UNK
  5. GABAPENTIN. [Concomitant]
     Active Substance: GABAPENTIN
     Dosage: UNK
  6. CYCLOPHOSPHAMIDE. [Concomitant]
     Active Substance: CYCLOPHOSPHAMIDE
     Indication: ACUTE LYMPHOCYTIC LEUKAEMIA
     Dosage: UNK, CYCLIC (INDUCTION THERAPY, FIRST CONSOLIDATION COURSE)
  7. SENNA /00142201/ [Concomitant]
     Active Substance: SENNA LEAF
     Dosage: UNK
  8. OXYCODONE [Concomitant]
     Active Substance: OXYCODONE
     Dosage: UNK, (IMMEDIATE RELEASE)
  9. TRIMETHOPRIM SULFAMETHOXAZOLE [Concomitant]
     Active Substance: SULFAMETHOXAZOLE\TRIMETHOPRIM
     Indication: PNEUMOCYSTIS JIROVECII PNEUMONIA
     Dosage: UNK
  10. LEVOTHYROXINE. [Concomitant]
     Active Substance: LEVOTHYROXINE
     Dosage: UNK
  11. L-ASPARAGINASE [Concomitant]
     Active Substance: ASPARAGINASE
     Indication: ACUTE LYMPHOCYTIC LEUKAEMIA
     Dosage: UNK, CYCLIC (INDUCTION THERAPY)
  12. METHOTREXATE. [Concomitant]
     Active Substance: METHOTREXATE
     Dosage: UNK, (FIRST CONSOLIDATION COURSE, INTRATHECALLY, ON DAY 1, SECOND CONSOLIDATION COURSE-THIRD CYCLE)
     Route: 037
  13. MERCAPTOPURINE. [Concomitant]
     Active Substance: MERCAPTOPURINE
     Indication: ACUTE LYMPHOCYTIC LEUKAEMIA
     Dosage: 60 MG/M2, DAILY (INITIATED ON DAY 1, ON DAY 9, SECOND CONSOLIDATION COURSE-THIRD CYCLE)
     Route: 048
  14. CALCIUM ACETATE. [Concomitant]
     Active Substance: CALCIUM ACETATE
     Dosage: UNK
  15. LACTULOSE. [Concomitant]
     Active Substance: LACTULOSE
     Dosage: UNK, AS NEEDED
  16. DAUNORUBICIN [Concomitant]
     Active Substance: DAUNORUBICIN
     Indication: ACUTE LYMPHOCYTIC LEUKAEMIA
     Dosage: UNK, CYCLIC (FIRST CONSOLIDATION COURSE)
  17. DEXAMETHASONE. [Concomitant]
     Active Substance: DEXAMETHASONE
     Indication: ACUTE LYMPHOCYTIC LEUKAEMIA
     Dosage: UNK, CYCLIC (INDUCTION THERAPY, FIRST CONSOLIDATION COURSE)
  18. METHOTREXATE. [Concomitant]
     Active Substance: METHOTREXATE
     Dosage: UNK, CYCLIC (ON DAYS 1 AND 2, SECOND CONSOLIDATION COURSE-THIRD CYCLE)
     Route: 048
  19. ONDANSETRON [Concomitant]
     Active Substance: ONDANSETRON
     Dosage: UNK, AS NEEDED
  20. CYTARABINE. [Concomitant]
     Active Substance: CYTARABINE
     Indication: ACUTE LYMPHOCYTIC LEUKAEMIA
     Dosage: UNK (FIRST CONSOLIDATION COURSE)
  21. LEUKOVORIN [Concomitant]
     Active Substance: LEUCOVORIN SODIUM
     Indication: ACUTE LYMPHOCYTIC LEUKAEMIA
     Dosage: UNK, CYCLIC (RESCUE, ON DAY 1, SECOND CONSOLIDATION COURSE-THIRD CYCLE)
  22. DOCUSATE [Concomitant]
     Active Substance: DOCUSATE
     Dosage: UNK
  23. OXYCODONE [Concomitant]
     Active Substance: OXYCODONE
     Dosage: UNK,(EXTENDED RELEASE)

REACTIONS (1)
  - Neuropathy peripheral [Unknown]
